FAERS Safety Report 6712305-X (Version None)
Quarter: 2010Q2

REPORT INFORMATION
  Report Type: 
  Country: None (occurrence: None)
  Receive Date: 20100505
  Receipt Date: 20100224
  Transmission Date: 20101027
  Serious: Yes (Hospitalization)
  Sender: FDA-Public Use
  Company Number: JP-GILEAD-E2B_00000516

PATIENT
  Sex: Male

DRUGS (3)
  1. HEPSERA [Suspect]
     Indication: HEPATIC CIRRHOSIS
     Dosage: 10MG PER DAY
     Route: 048
     Dates: start: 20040101
  2. ZEFIX [Suspect]
     Indication: HEPATIC CIRRHOSIS
     Dosage: 100MG PER DAY
     Route: 048
     Dates: start: 19990101, end: 20090810
  3. TAKEPRON [Concomitant]
     Indication: REFLUX OESOPHAGITIS
     Dosage: 15MG PER DAY
     Route: 048
     Dates: start: 20050101

REACTIONS (5)
  - DRUG RESISTANCE [None]
  - HEPATITIS B [None]
  - HEPATITIS B DNA INCREASED [None]
  - TRANSAMINASES INCREASED [None]
  - VIRAL HEPATITIS CARRIER [None]
